FAERS Safety Report 21892889 (Version 1)
Quarter: 2023Q1

REPORT INFORMATION
  Report Type: Report from Study
  Country: US (occurrence: US)
  Receive Date: 20230120
  Receipt Date: 20230120
  Transmission Date: 20230418
  Serious: Yes (Other)
  Sender: FDA-Public Use
  Company Number: US-JAZZ-2022-US-034033

PATIENT
  Sex: Female

DRUGS (1)
  1. XYWAV [Suspect]
     Active Substance: CALCIUM OXYBATE\MAGNESIUM OXYBATE\POTASSIUM OXYBATE\SODIUM OXYBATE
     Indication: Hypersomnia
     Dosage: 6 GRAM
     Dates: start: 202210

REACTIONS (9)
  - Anaphylactic reaction [Unknown]
  - Feeling abnormal [Unknown]
  - Gastric disorder [Unknown]
  - Thirst [Unknown]
  - Pruritus [Unknown]
  - Pollakiuria [Unknown]
  - Nausea [Not Recovered/Not Resolved]
  - Somnolence [Unknown]
  - Disorientation [Unknown]
